FAERS Safety Report 15618912 (Version 4)
Quarter: 2021Q1

REPORT INFORMATION
  Report Type: Spontaneous
  Country: IT (occurrence: IT)
  Receive Date: 20181114
  Receipt Date: 20210105
  Transmission Date: 20210419
  Serious: Yes (Hospitalization)
  Sender: FDA-Public Use
  Company Number: IT-BIOGEN-2018BI00639110

PATIENT
  Age: 7 Year
  Sex: Male
  Weight: 20 kg

DRUGS (4)
  1. SPINRAZA [Suspect]
     Active Substance: NUSINERSEN
     Indication: SPINAL MUSCULAR ATROPHY
     Dosage: PERFORMED ON TREATMENT DAYS 0, 15, 30, 60 AND SUBSEQUENTLY EVERY FOUR MONTHS
     Route: 050
     Dates: start: 20170201, end: 20180803
  2. DOBETIN [Concomitant]
     Indication: VITAMIN SUPPLEMENTATION
     Dosage: 20 UG/ML
     Route: 050
     Dates: start: 20110801, end: 20180924
  3. OMEPRAZOLE. [Concomitant]
     Active Substance: OMEPRAZOLE
     Indication: PROPHYLAXIS
     Route: 050
     Dates: start: 20110801, end: 20180924
  4. SPINRAZA [Suspect]
     Active Substance: NUSINERSEN
     Route: 050
     Dates: start: 20180803, end: 20180803

REACTIONS (3)
  - Drug ineffective [Unknown]
  - Papilloedema [Recovered/Resolved]
  - Hydrocephalus [Not Recovered/Not Resolved]

NARRATIVE: CASE EVENT DATE: 20180910
